FAERS Safety Report 15377809 (Version 1)
Quarter: 2018Q3

REPORT INFORMATION
  Report Type: Spontaneous
  Country: US (occurrence: US)
  Receive Date: 20180913
  Receipt Date: 20180913
  Transmission Date: 20181010
  Serious: No
  Sender: FDA-Public Use
  Company Number: US-SA-2018SA251116

PATIENT

DRUGS (5)
  1. DAPTACEL [Suspect]
     Active Substance: BORDETELLA PERTUSSIS FILAMENTOUS HEMAGGLUTININ ANTIGEN (FORMALDEHYDE INACTIVATED)\BORDETELLA PERTUSSIS FIMBRIAE 2/3 ANTIGEN\BORDETELLA PERTUSSIS PERTACTIN ANTIGEN\BORDETELLA PERTUSSIS TOXOID ANTIGEN (GLUTARALDEHYDE INACTIVATED)\CLOSTRIDIUM TETANI TOXOID ANTIGEN (FORMALDEHYDE INACTIVATED)\CORYNEBACTE
     Indication: IMMUNISATION
  2. IPOL [Suspect]
     Active Substance: POLIOVIRUS TYPE 1 ANTIGEN (FORMALDEHYDE INACTIVATED)\POLIOVIRUS TYPE 2 ANTIGEN (FORMALDEHYDE INACTIVATED)\POLIOVIRUS TYPE 3 ANTIGEN (FORMALDEHYDE INACTIVATED)\POLIOVIRUS VACCINE INACTIVATED MONKEY KIDNEY CELL
     Indication: IMMUNISATION
  3. ADACEL TDAP [Suspect]
     Active Substance: TETANUS TOXOID, REDUCED DIPHTHERIA TOXOID AND ACELLULAR PERTUSSIS VACCINE ADSORBED, TDAP
     Indication: IMMUNISATION
  4. TUBERSOL [Suspect]
     Active Substance: TUBERCULIN PURIFIED PROTEIN DERIVATIVE
     Indication: SKIN TEST
     Dosage: 0.1 ML
     Route: 023
  5. MENACTRA [Suspect]
     Active Substance: NEISSERIA MENINGITIDIS GROUP A CAPSULAR POLYSACCHARIDE DIPHTHERIA TOXOID CONJUGATE ANTIGEN\NEISSERIA MENINGITIDIS GROUP C CAPSULAR POLYSACCHARIDE DIPHTHERIA TOXOID CONJUGATE ANTIGEN\NEISSERIA MENINGITIDIS GROUP W-135 CAPSULAR POLYSACCHARIDE DIPHTHERIA TOXOID CONJUGATE ANTIGEN\NEISSERIA MENINGITIDIS
     Indication: IMMUNISATION

REACTIONS (1)
  - Product storage error [Unknown]
